FAERS Safety Report 7488913-8 (Version None)
Quarter: 2011Q2

REPORT INFORMATION
  Report Type: 
  Country: None (occurrence: None)
  Receive Date: 20110518
  Receipt Date: 20110412
  Transmission Date: 20111010
  Serious: Yes (Other)
  Sender: FDA-Public Use
  Company Number: US-BAYER-2011-013977

PATIENT
  Age: 19 Year
  Sex: Female
  Weight: 52.154 kg

DRUGS (2)
  1. YASMIN [Suspect]
     Indication: CONTRACEPTION
     Dosage: 1 DF, QD
     Route: 048
     Dates: start: 20070901, end: 20080724
  2. DROSPIRENONE AND ETHINYL ESTRADIOL [Suspect]
     Indication: CONTRACEPTION
     Dosage: 1 DF, QD
     Route: 048
     Dates: start: 20080724, end: 20090601

REACTIONS (2)
  - CHOLECYSTITIS CHRONIC [None]
  - CHOLELITHIASIS [None]
